FAERS Safety Report 9783303 (Version 1)
Quarter: 2013Q4

REPORT INFORMATION
  Report Type: Spontaneous
  Country: US (occurrence: None)
  Receive Date: 20131223
  Receipt Date: 20131223
  Transmission Date: 20140711
  Serious: Yes (Death, Other)
  Sender: FDA-Public Use
  Company Number: AG-2013-016288

PATIENT
  Age: 71 Year
  Sex: Female
  Weight: 70 kg

DRUGS (1)
  1. CHLORAMBUCIL (CHLORAMBUCIL) (TABLET) [Suspect]
     Indication: CHRONIC LYMPHOCYTIC LEUKAEMIA
     Dosage: 4 MILLIGRAM (4 MILLIGRAM, 1 IN 1 DAYS), ORAL
     Dates: start: 20130829, end: 20131029

REACTIONS (3)
  - Disease progression [None]
  - Abdominal pain [None]
  - Chronic lymphocytic leukaemia [None]
